FAERS Safety Report 24147678 (Version 1)
Quarter: 2024Q3

REPORT INFORMATION
  Report Type: Spontaneous
  Country: FR (occurrence: FR)
  Receive Date: 20240729
  Receipt Date: 20240729
  Transmission Date: 20241016
  Serious: Yes (Hospitalization)
  Sender: BRISTOL MYERS SQUIBB
  Company Number: FR-BRISTOL-MYERS SQUIBB COMPANY-2024-117635

PATIENT
  Sex: Male

DRUGS (1)
  1. KRAZATI [Suspect]
     Active Substance: ADAGRASIB
     Indication: Non-small cell lung cancer
     Dosage: DOSE : UNAVAILABLE;     FREQ : UNAVAILABLE

REACTIONS (1)
  - General physical health deterioration [Unknown]
